FAERS Safety Report 6834747-4 (Version None)
Quarter: 2010Q3

REPORT INFORMATION
  Report Type: 
  Country: None (occurrence: None)
  Receive Date: 20100712
  Receipt Date: 20070419
  Transmission Date: 20110219
  Serious: No
  Sender: FDA-Public Use
  Company Number: US-PFIZER INC-2007033445

PATIENT
  Age: 48 Year
  Sex: Female
  Weight: 69.09 kg

DRUGS (5)
  1. CHANTIX [Suspect]
     Indication: SMOKING CESSATION THERAPY
     Dates: start: 20070403
  2. VIVELLE-DOT [Concomitant]
  3. VYTORIN [Concomitant]
     Indication: BLOOD CHOLESTEROL
  4. OMACOR [Concomitant]
  5. WELLBUTRIN [Concomitant]

REACTIONS (3)
  - DRUG WITHDRAWAL SYNDROME [None]
  - IRRITABILITY [None]
  - MEDICATION ERROR [None]
